FAERS Safety Report 15459188 (Version 1)
Quarter: 2018Q4

REPORT INFORMATION
  Report Type: Spontaneous
  Country: US (occurrence: US)
  Receive Date: 20181001
  Receipt Date: 20181001
  Transmission Date: 20190204
  Serious: Yes (Other)
  Sender: FDA-Public Use
  Company Number: None

PATIENT
  Sex: Female
  Weight: 80.1 kg

DRUGS (6)
  1. LATANOPROST. [Concomitant]
     Active Substance: LATANOPROST
  2. DETROL [Concomitant]
     Active Substance: TOLTERODINE TARTRATE
  3. VARIOUS PRESCRIPTION STEROID CREAM [Concomitant]
  4. CLARITIN [Concomitant]
     Active Substance: LORATADINE
  5. PROLIA [Suspect]
     Active Substance: DENOSUMAB
     Indication: OSTEOPOROSIS
     Dosage: ?          OTHER FREQUENCY:Q  6  MONTHS;?
     Route: 058
     Dates: start: 20150301, end: 20180330
  6. CATRATE MINIS [Concomitant]

REACTIONS (2)
  - Dermatitis [None]
  - Rash [None]
